FAERS Safety Report 7850098 (Version 4)
Quarter: 2013Q4

REPORT INFORMATION
  Report Type: Spontaneous
  Country: US (occurrence: US)
  Receive Date: 20110310
  Receipt Date: 20131211
  Transmission Date: 20140711
  Serious: Yes (Other)
  Sender: FDA-Public Use
  Company Number: US-ROCHE-746524

PATIENT
  Age: 22 Year
  Sex: Male
  Weight: 79.4 kg

DRUGS (1)
  1. ACCUTANE [Suspect]
     Indication: ACNE
     Route: 065
     Dates: start: 19821109, end: 198305

REACTIONS (10)
  - Crohn^s disease [Unknown]
  - Anal fistula [Unknown]
  - Anal abscess [Unknown]
  - Intestinal obstruction [Unknown]
  - Depression [Unknown]
  - Irritable bowel syndrome [Unknown]
  - Back pain [Unknown]
  - Blood triglycerides increased [Unknown]
  - Dry eye [Unknown]
  - Dry skin [Unknown]
